FAERS Safety Report 9540005 (Version 1)
Quarter: 2013Q3

REPORT INFORMATION
  Report Type: Report from Study
  Country: US (occurrence: US)
  Receive Date: 20130920
  Receipt Date: 20130920
  Transmission Date: 20140515
  Serious: No
  Sender: FDA-Public Use
  Company Number: US-ABBVIE-13P-163-1140409-00

PATIENT
  Age: 28 Year
  Sex: Male

DRUGS (3)
  1. HUMIRA [Suspect]
     Indication: CROHN^S DISEASE
     Dates: start: 20130413
  2. PENTASA [Concomitant]
     Indication: CROHN^S DISEASE
     Route: 048
  3. ENTOCORT [Concomitant]
     Indication: PRODUCT USED FOR UNKNOWN INDICATION
     Dates: start: 201307

REACTIONS (2)
  - Neoplasm skin [Not Recovered/Not Resolved]
  - Psoriasis [Not Recovered/Not Resolved]
